FAERS Safety Report 9664305 (Version 1)
Quarter: 2013Q4

REPORT INFORMATION
  Report Type: Spontaneous
  Country: US (occurrence: US)
  Receive Date: 20131101
  Receipt Date: 20131101
  Transmission Date: 20140711
  Serious: Yes (Other)
  Sender: FDA-Public Use
  Company Number: US-PFIZER INC-2013309109

PATIENT
  Age: 79 Year
  Sex: Female
  Weight: 79.37 kg

DRUGS (5)
  1. CIPROFLOXACIN [Suspect]
     Indication: DIVERTICULITIS
     Dosage: 500 MG, 2X/DAY
     Route: 048
     Dates: start: 201308
  2. CIPROFLOXACIN [Interacting]
     Dosage: 500 MG, 2X/DAY
     Route: 048
     Dates: start: 20130926, end: 201310
  3. FLAGYL [Interacting]
     Indication: DIVERTICULITIS
     Dosage: UNK
     Dates: start: 201308
  4. VITAMIN D [Concomitant]
     Dosage: 400 IU, DAILY
  5. ZOCOR [Concomitant]
     Dosage: UNK

REACTIONS (7)
  - Diverticulitis [Unknown]
  - Skin reaction [Unknown]
  - Drug interaction [Recovered/Resolved]
  - Dyspnoea [Recovered/Resolved]
  - Chest discomfort [Recovered/Resolved]
  - Anxiety [Not Recovered/Not Resolved]
  - Diarrhoea [Recovered/Resolved]
